FAERS Safety Report 5796076-X (Version None)
Quarter: 2008Q2

REPORT INFORMATION
  Report Type: 
  Country: None (occurrence: None)
  Receive Date: 20080626
  Receipt Date: 20080610
  Transmission Date: 20081010
  Serious: Yes (Life-Threatening, Hospitalization, Other)
  Sender: FDA-Public Use
  Company Number: TPA2008A00800

PATIENT
  Age: 50 Year
  Sex: Female
  Weight: 110.7 kg

DRUGS (8)
  1. PIOGLITAZONE HCL [Suspect]
     Indication: TYPE 2 DIABETES MELLITUS
     Dosage: 15 MG, 1 IN 1 D, PER ORAL
     Route: 048
     Dates: start: 20070525, end: 20080423
  2. METFORMIN HCL [Suspect]
     Indication: TYPE 2 DIABETES MELLITUS
     Dosage: 1000 MG, 1 IN 1 D, ORAL
     Route: 048
     Dates: start: 20080218
  3. BYETTA [Suspect]
     Indication: TYPE 2 DIABETES MELLITUS
     Dosage: 10 MCG, 5 MCG BEFORE BREAKFAST AND DINNER, SUBCUTANEOUS
     Route: 058
     Dates: start: 20070525, end: 20080423
  4. EXUBERA [Suspect]
     Dosage: INHALATION
  5. AVALIDE [Concomitant]
  6. CRESTOR [Concomitant]
  7. LASIX [Concomitant]
  8. ALBUTEROL (SALBUTAMOL) (INHALANT) [Concomitant]

REACTIONS (4)
  - CHEST PAIN [None]
  - DEEP VEIN THROMBOSIS [None]
  - OEDEMA PERIPHERAL [None]
  - PULMONARY EMBOLISM [None]
